FAERS Safety Report 6588139-6 (Version None)
Quarter: 2010Q1

REPORT INFORMATION
  Report Type: 
  Country: None (occurrence: None)
  Receive Date: 20100218
  Receipt Date: 20100212
  Transmission Date: 20100710
  Serious: Yes (Other)
  Sender: FDA-Public Use
  Company Number: US-ASTRAZENECA-2010SE06380

PATIENT
  Age: 81 Year
  Sex: Male
  Weight: 80.7 kg

DRUGS (8)
  1. SYMBICORT [Suspect]
     Indication: CHRONIC OBSTRUCTIVE PULMONARY DISEASE
     Dosage: 640 MCG
     Route: 055
     Dates: start: 20090501
  2. ZOCOR [Concomitant]
  3. FLOMAX [Concomitant]
  4. CHEMOTHERAPY [Concomitant]
  5. FOLIC ACID [Concomitant]
  6. PREDNISONE [Concomitant]
  7. NORVASC [Concomitant]
  8. ATIVAN [Concomitant]

REACTIONS (1)
  - NON-SMALL CELL LUNG CANCER [None]
